FAERS Safety Report 7807151 (Version 3)
Quarter: 2013Q2

REPORT INFORMATION
  Report Type: Spontaneous
  Country: US (occurrence: None)
  Receive Date: 20110105
  Receipt Date: 20130516
  Transmission Date: 20140414
  Serious: Yes (Other)
  Sender: FDA-Public Use
  Company Number: IMP_05148_2010

PATIENT
  Age: 45 Year
  Sex: Male
  Weight: 106.6 kg

DRUGS (1)
  1. TAMSULOSIN HYDROCHLORIDE [Suspect]
     Indication: PRODUCT USED FOR UNKNOWN INDICATION
     Dosage: (0.4 MG QD ORAL)
     Route: 048

REACTIONS (2)
  - NIGHTMARE [None]
  - HALLUCINATION [None]
